FAERS Safety Report 7269602-1 (Version None)
Quarter: 2011Q1

REPORT INFORMATION
  Report Type: 
  Country: None (occurrence: None)
  Receive Date: 20110202
  Receipt Date: 20110128
  Transmission Date: 20110831
  Serious: Yes (Other)
  Sender: FDA-Public Use
  Company Number: UY-B.I. PHARMACEUTICALS,INC./RIDGEFIELD-2011-RA-00034RA

PATIENT

DRUGS (1)
  1. DABIGATRAN ETEXILATE [Suspect]
     Indication: THROMBOSIS PROPHYLAXIS

REACTIONS (1)
  - PULMONARY EMBOLISM [None]
